FAERS Safety Report 9290767 (Version 2)
Quarter: 2014Q1

REPORT INFORMATION
  Report Type: Spontaneous
  Country: US (occurrence: US)
  Receive Date: 20130515
  Receipt Date: 20140131
  Transmission Date: 20141002
  Serious: Yes (Hospitalization)
  Sender: FDA-Public Use
  Company Number: US-BAYER-2013-057805

PATIENT
  Age: 31 Year
  Sex: Female
  Weight: 90.7 kg

DRUGS (3)
  1. MIRENA [Suspect]
     Indication: CONTRACEPTION
     Dosage: 20 MCG/24HR, CONT
     Route: 015
     Dates: start: 200609, end: 201105
  2. VICODIN [Concomitant]
  3. MOTRIN [Concomitant]

REACTIONS (13)
  - Uterine perforation [None]
  - Medical device complication [None]
  - Ectopic pregnancy with contraceptive device [Recovered/Resolved]
  - Drug ineffective [None]
  - Injury [None]
  - Pain [None]
  - Emotional distress [None]
  - Ovarian cyst [None]
  - Genital haemorrhage [None]
  - Medical device discomfort [None]
  - Depression [None]
  - Anxiety [None]
  - Fear [None]
